FAERS Safety Report 11079219 (Version 3)
Quarter: 2015Q3

REPORT INFORMATION
  Report Type: Spontaneous
  Country: TR (occurrence: TR)
  Receive Date: 20150430
  Receipt Date: 20150722
  Transmission Date: 20151125
  Serious: Yes (Death, Life-Threatening, Other)
  Sender: FDA-Public Use
  Company Number: TR-CELGENE-TUR-2015044815

PATIENT
  Age: 68 Year
  Sex: Male
  Weight: 84.5 kg

DRUGS (9)
  1. PLATELETS [Concomitant]
     Active Substance: HUMAN PLATELET, ALLOGENIC
     Indication: NEUTROPENIA
  2. OXYGEN. [Concomitant]
     Active Substance: OXYGEN
     Indication: DYSPNOEA
     Route: 065
     Dates: start: 20150202
  3. RED BLOOD CELLS [Concomitant]
     Active Substance: HUMAN RED BLOOD CELL
     Indication: SEPTIC SHOCK
     Route: 065
     Dates: start: 20150115
  4. ELTROMBOPAG [Suspect]
     Active Substance: ELTROMBOPAG
     Indication: MYELODYSPLASTIC SYNDROME
     Route: 048
     Dates: start: 20141015, end: 20141030
  5. G-CSF [Concomitant]
     Active Substance: GRANULOCYTE COLONY-STIMULATING FACTOR NOS
     Indication: THROMBOCYTOPENIA
     Route: 065
  6. PLATELETS [Concomitant]
     Active Substance: HUMAN PLATELET, ALLOGENIC
     Indication: THROMBOCYTOPENIA
     Route: 065
     Dates: start: 201501
  7. ELTROMBOPAG [Suspect]
     Active Substance: ELTROMBOPAG
     Route: 048
     Dates: start: 20141112, end: 20150204
  8. G-CSF [Concomitant]
     Active Substance: GRANULOCYTE COLONY-STIMULATING FACTOR NOS
     Indication: NEUTROPENIA
  9. AZACITIDINE. [Suspect]
     Active Substance: AZACITIDINE
     Indication: MYELODYSPLASTIC SYNDROME
     Route: 058
     Dates: start: 20141015, end: 20150113

REACTIONS (1)
  - Septic shock [Fatal]

NARRATIVE: CASE EVENT DATE: 20150204
